FAERS Safety Report 10378485 (Version 2)
Quarter: 2014Q3

REPORT INFORMATION
  Report Type: Spontaneous
  Country: US (occurrence: US)
  Receive Date: 20140812
  Receipt Date: 20140924
  Transmission Date: 20150326
  Serious: Yes (Other)
  Sender: FDA-Public Use
  Company Number: US-SA-2014SA106835

PATIENT
  Age: 48 Year
  Sex: Female
  Weight: 65 kg

DRUGS (2)
  1. ANTIHYPERTENSIVES [Concomitant]
     Active Substance: UNSPECIFIED INGREDIENT
     Indication: HYPERTENSION
  2. AMBIEN [Suspect]
     Active Substance: ZOLPIDEM TARTRATE
     Indication: INSOMNIA
     Dosage: TAKEN FROM-ON THE NIGHT OF 01-JUL-2014 OR MAYBE 02-JUL-2014
     Route: 065
     Dates: start: 201407, end: 201407

REACTIONS (4)
  - Paralysis [Unknown]
  - Victim of sexual abuse [Unknown]
  - Somnolence [Recovered/Resolved]
  - Somnolence [Recovered/Resolved]

NARRATIVE: CASE EVENT DATE: 201407
